FAERS Safety Report 9564874 (Version 2)
Quarter: 2013Q4

REPORT INFORMATION
  Report Type: Report from Study
  Country: FR (occurrence: FR)
  Receive Date: 20130930
  Receipt Date: 20131010
  Transmission Date: 20140711
  Serious: Yes (Death)
  Sender: FDA-Public Use
  Company Number: FR-CELGENEUS-056-C4047-13093631

PATIENT
  Age: 58 Year
  Sex: Female
  Weight: 56 kg

DRUGS (3)
  1. CC-4047 [Suspect]
     Indication: PLASMA CELL MYELOMA
     Dosage: 4 MILLIGRAM
     Route: 048
     Dates: start: 20120327
  2. DEXAMETHASONE [Concomitant]
     Indication: PLASMA CELL MYELOMA
     Dosage: 40 MILLIGRAM
     Route: 065
  3. DEXAMETHASONE [Concomitant]
     Route: 065
     Dates: start: 2007, end: 2008

REACTIONS (2)
  - Septic shock [Fatal]
  - Plasma cell myeloma [Fatal]
